FAERS Safety Report 4940163-2 (Version None)
Quarter: 2006Q1

REPORT INFORMATION
  Report Type: 
  Country: None (occurrence: None)
  Receive Date: 20060307
  Receipt Date: 20060224
  Transmission Date: 20060701
  Serious: Yes (Other)
  Sender: FDA-Public Use
  Company Number: 222566

PATIENT
  Age: 46 Year
  Sex: Female

DRUGS (4)
  1. HERCEPTIN [Suspect]
     Indication: BREAST CANCER
     Dosage: 2 MG/KG, 1/WEEK,
     Dates: start: 20051001
  2. TAMOXIFEN CITRATE [Concomitant]
  3. PROBIOTIC (INGREDIENTS) (GENERIC COMPONENT (S)) [Concomitant]
  4. ACETAMINOPHEN [Concomitant]

REACTIONS (10)
  - CONVULSION [None]
  - DIZZINESS [None]
  - EMOTIONAL DISTRESS [None]
  - FATIGUE [None]
  - GASTROINTESTINAL DISORDER [None]
  - HEADACHE [None]
  - LOSS OF CONSCIOUSNESS [None]
  - MUSCULOSKELETAL STIFFNESS [None]
  - NAUSEA [None]
  - VISUAL DISTURBANCE [None]
